FAERS Safety Report 15923812 (Version 2)
Quarter: 2019Q2

REPORT INFORMATION
  Report Type: Report from Study
  Country: GB (occurrence: GB)
  Receive Date: 20190206
  Receipt Date: 20190402
  Transmission Date: 20190711
  Serious: Yes (Other)
  Sender: FDA-Public Use
  Company Number: GB-AMGEN-GBRSL2019016557

PATIENT
  Age: 66 Year
  Sex: Male

DRUGS (3)
  1. REPATHA [Suspect]
     Active Substance: EVOLOCUMAB
     Indication: PRIMARY HYPERCHOLESTEROLAEMIA
  2. REPATHA [Suspect]
     Active Substance: EVOLOCUMAB
     Indication: BLOOD CHOLESTEROL INCREASED
     Dosage: 140 MILLIGRAM, Q2WK
     Route: 065
     Dates: start: 20180116, end: 20180614
  3. REPATHA [Suspect]
     Active Substance: EVOLOCUMAB
     Indication: PROPHYLAXIS

REACTIONS (2)
  - Memory impairment [Unknown]
  - Cognitive disorder [Unknown]
